FAERS Safety Report 5865627-9 (Version None)
Quarter: 2008Q3

REPORT INFORMATION
  Report Type: 
  Country: None (occurrence: None)
  Receive Date: 20080829
  Receipt Date: 20080709
  Transmission Date: 20090109
  Serious: Yes (Other)
  Sender: FDA-Public Use
  Company Number: US-PURDUE-USA_2008_0034175

PATIENT
  Age: 49 Year
  Sex: Female
  Weight: 84 kg

DRUGS (5)
  1. OXYCONTIN [Suspect]
     Indication: NECK PAIN
  2. SKELAXIN [Concomitant]
  3. BENADRYL [Concomitant]
  4. MOTRIN [Concomitant]
  5. BUSPAR [Concomitant]

REACTIONS (5)
  - AMNESIA [None]
  - GASTROINTESTINAL DISORDER [None]
  - TOOTH DECALCIFICATION [None]
  - TOOTH LOSS [None]
  - WEIGHT ABNORMAL [None]
